FAERS Safety Report 6558354-6 (Version None)
Quarter: 2010Q1

REPORT INFORMATION
  Report Type: 
  Country: None (occurrence: None)
  Receive Date: 20100126
  Receipt Date: 20100113
  Transmission Date: 20100710
  Serious: Yes (Other)
  Sender: FDA-Public Use
  Company Number: 2009AC000446

PATIENT
  Age: 59 Year
  Sex: Male

DRUGS (34)
  1. DIGOXIN [Suspect]
     Dosage: UNKNOWN;UNK;PO
     Route: 048
     Dates: start: 19990101
  2. COUMADIN [Concomitant]
  3. COMBIVENT [Concomitant]
  4. ADVAIR DISKUS 100/50 [Concomitant]
  5. KEFLEX [Concomitant]
  6. ADDERALL 30 [Concomitant]
  7. SPIRONOLACTONE [Concomitant]
  8. KLONOPIN [Concomitant]
  9. AMITRIPTYLINE HCL [Concomitant]
  10. NEXIUM [Concomitant]
  11. METOCLOPRAMIDE [Concomitant]
  12. CARTIA EC [Concomitant]
  13. COUMADIN [Concomitant]
  14. NEXIUM [Concomitant]
  15. CLONOPIN [Concomitant]
  16. RISPERDAL [Concomitant]
  17. CARDIZEM [Concomitant]
  18. TORPOL [Concomitant]
  19. AMITRIPTYLINE HCL [Concomitant]
  20. METOCLOPRAMIDE [Concomitant]
  21. CARTIA XT [Concomitant]
  22. COUMADIN [Concomitant]
  23. OXYCODONE HCL [Concomitant]
  24. DIAZEPAM [Concomitant]
  25. FUROSEMIDE [Concomitant]
  26. POTASSIUM [Concomitant]
  27. CEPHALEXIN [Concomitant]
  28. SILVER SULFADIAZINE [Concomitant]
  29. AMMONIUM LACTATE [Concomitant]
  30. VOLTAREN [Concomitant]
  31. TUSSIONEX [Concomitant]
  32. SPIRONOLACTONE [Concomitant]
  33. *ATENOLOL [Concomitant]
  34. METANX [Concomitant]

REACTIONS (14)
  - ABDOMINAL PAIN [None]
  - ATRIAL FIBRILLATION [None]
  - CARDIAC DISORDER [None]
  - CELLULITIS [None]
  - CHEST DISCOMFORT [None]
  - CORONARY ARTERY DISEASE [None]
  - CYANOSIS [None]
  - CYSTITIS [None]
  - DYSPNOEA [None]
  - ECONOMIC PROBLEM [None]
  - HAEMATURIA [None]
  - HEPATIC LESION [None]
  - HYPERHIDROSIS [None]
  - MULTIPLE INJURIES [None]
